FAERS Safety Report 25800007 (Version 2)
Quarter: 2025Q4

REPORT INFORMATION
  Report Type: Report from Study
  Country: EG (occurrence: EG)
  Receive Date: 20250914
  Receipt Date: 20251001
  Transmission Date: 20260118
  Serious: Yes (Hospitalization)
  Sender: BIOGEN
  Company Number: EG-BIOGEN-2025BI01321639

PATIENT
  Sex: Female

DRUGS (11)
  1. TYSABRI [Suspect]
     Active Substance: NATALIZUMAB
     Indication: Multiple sclerosis
     Route: 050
     Dates: start: 20231007, end: 202410
  2. TYSABRI [Suspect]
     Active Substance: NATALIZUMAB
     Route: 050
     Dates: start: 202410
  3. TYSABRI [Suspect]
     Active Substance: NATALIZUMAB
     Route: 050
     Dates: start: 20231007
  4. IRON [Concomitant]
     Active Substance: IRON
     Indication: Product used for unknown indication
     Route: 050
     Dates: start: 202502, end: 202508
  5. IRON [Concomitant]
     Active Substance: IRON
     Route: 050
     Dates: start: 202411, end: 202506
  6. DUPHASTON [Concomitant]
     Active Substance: DYDROGESTERONE
     Indication: Pregnancy
     Route: 050
     Dates: start: 202411, end: 202506
  7. DUPHASTON [Concomitant]
     Active Substance: DYDROGESTERONE
     Route: 050
     Dates: start: 202411, end: 202506
  8. VITAMIN D [Concomitant]
     Active Substance: VITAMIN D NOS
     Indication: Pregnancy
     Route: 050
     Dates: start: 202502, end: 202508
  9. VITAMIN D [Concomitant]
     Active Substance: VITAMIN D NOS
     Route: 050
     Dates: start: 202411, end: 202506
  10. CALCIUM [Concomitant]
     Active Substance: CALCIUM
     Indication: Pregnancy
     Route: 050
     Dates: start: 202502, end: 202508
  11. CALCIUM [Concomitant]
     Active Substance: CALCIUM
     Route: 050
     Dates: start: 202411, end: 202506

REACTIONS (4)
  - Meconium in amniotic fluid [Recovered/Resolved]
  - Maternal exposure during pregnancy [Recovered/Resolved]
  - Haemorrhage in pregnancy [Unknown]
  - Muscle spasms [Recovered/Resolved]

NARRATIVE: CASE EVENT DATE: 20240101
